FAERS Safety Report 6610586-4 (Version None)
Quarter: 2010Q1

REPORT INFORMATION
  Report Type: 
  Country: None (occurrence: None)
  Receive Date: 20100302
  Receipt Date: 20100218
  Transmission Date: 20100710
  Serious: Yes (Other)
  Sender: FDA-Public Use
  Company Number: DE-PFIZER INC-2010021321

PATIENT
  Age: 71 Year
  Sex: Male

DRUGS (2)
  1. LYRICA [Suspect]
     Indication: NEURALGIA
     Dosage: 150 MG, 1X/DAY
  2. KATADOLON [Concomitant]
     Indication: PAIN
     Dosage: 1 DF, 3X/DAY

REACTIONS (3)
  - DRUG EFFECT DECREASED [None]
  - LIP OEDEMA [None]
  - PAIN [None]
